FAERS Safety Report 7588333-1 (Version None)
Quarter: 2011Q3

REPORT INFORMATION
  Report Type: 
  Country: None (occurrence: None)
  Receive Date: 20110705
  Receipt Date: 20110621
  Transmission Date: 20111222
  Serious: Yes (Other)
  Sender: FDA-Public Use
  Company Number: US-BAYER-200934264NA

PATIENT
  Sex: Male
  Weight: 63 kg

DRUGS (3)
  1. RED BLOOD CELLS [Concomitant]
     Dosage: 1 U, UNK
     Route: 042
     Dates: start: 20070507
  2. TRASYLOL [Suspect]
     Indication: PRODUCT USED FOR UNKNOWN INDICATION
     Dosage: UNK, TEST DOSE
     Route: 042
     Dates: start: 20070507, end: 20070507
  3. TRASYLOL [Suspect]
     Dosage: 50 ML, Q1HR
     Route: 042
     Dates: start: 20070507, end: 20070507

REACTIONS (12)
  - MULTI-ORGAN FAILURE [None]
  - RENAL FAILURE [None]
  - EMOTIONAL DISTRESS [None]
  - UNEVALUABLE EVENT [None]
  - RENAL INJURY [None]
  - INJURY [None]
  - ANXIETY [None]
  - ANHEDONIA [None]
  - FEAR [None]
  - DEPRESSION [None]
  - PAIN [None]
  - NERVOUSNESS [None]
